FAERS Safety Report 6249783-9 (Version None)
Quarter: 2009Q2

REPORT INFORMATION
  Report Type: 
  Country: None (occurrence: None)
  Receive Date: 20090629
  Receipt Date: 20090617
  Transmission Date: 20091009
  Serious: Yes (Death, Hospitalization)
  Sender: FDA-Public Use
  Company Number: AU-ASTRAZENECA-2009SE03084

PATIENT

DRUGS (1)
  1. QUETIAPINE [Suspect]

REACTIONS (3)
  - CARDIAC ARREST [None]
  - OVERDOSE [None]
  - RESPIRATORY FAILURE [None]
